FAERS Safety Report 5522843-3 (Version None)
Quarter: 2007Q4

REPORT INFORMATION
  Report Type: 
  Country: None (occurrence: None)
  Receive Date: 20071115
  Receipt Date: 20071029
  Transmission Date: 20080405
  Serious: Yes (Other)
  Sender: FDA-Public Use
  Company Number: STI-2007-01834

PATIENT
  Sex: Female

DRUGS (1)
  1. BETAMETHASONE (UNSPECIFIED) (BETAMETHASONE VALERATE) (BETAMETHASONE VA [Suspect]
     Dosage: APPLIED TO SCALP

REACTIONS (2)
  - DRUG DEPENDENCE [None]
  - SPIDER NAEVUS [None]
